FAERS Safety Report 4994244-8 (Version None)
Quarter: 2006Q2

REPORT INFORMATION
  Report Type: 
  Country: None (occurrence: None)
  Receive Date: 20060503
  Receipt Date: 20060406
  Transmission Date: 20061013
  Serious: No
  Sender: FDA-Public Use
  Company Number: 2006AP000261

PATIENT
  Age: 55 Year
  Sex: Male

DRUGS (4)
  1. TIZANIDINE HYDROCHLORIDE [Suspect]
     Indication: MUSCLE RELAXANT THERAPY
     Dosage: PO
     Route: 048
  2. ANALGESICS [Concomitant]
  3. MUSCLE RELAXANTS [Concomitant]
  4. ANTIDEPRESSANTS [Concomitant]

REACTIONS (1)
  - RASH [None]
